FAERS Safety Report 4910129-7 (Version None)
Quarter: 2006Q1

REPORT INFORMATION
  Report Type: 
  Country: None (occurrence: None)
  Receive Date: 20060209
  Receipt Date: 20060127
  Transmission Date: 20060701
  Serious: Yes (Death)
  Sender: FDA-Public Use
  Company Number: L05-USA-03935-14

PATIENT
  Age: 24 Month
  Sex: Female

DRUGS (1)
  1. TESSALON [Suspect]

REACTIONS (10)
  - ACCIDENTAL DRUG INTAKE BY CHILD [None]
  - ANOXIC ENCEPHALOPATHY [None]
  - APNOEA [None]
  - BRAIN OEDEMA [None]
  - CARDIAC ARREST [None]
  - CEREBRAL ISCHAEMIA [None]
  - CONVULSION [None]
  - CYANOSIS [None]
  - HEART RATE INCREASED [None]
  - RESPIRATORY ARREST [None]
